FAERS Safety Report 8787787 (Version 1)
Quarter: 2012Q4

REPORT INFORMATION
  Report Type: Report from Study
  Country: US (occurrence: US)
  Receive Date: 20120914
  Receipt Date: 20120914
  Transmission Date: 20130627
  Serious: Yes (Other)
  Sender: FDA-Public Use
  Company Number: US-VERTEX PHARMACEUTICAL INC.-AE-2012-008155

PATIENT

DRUGS (11)
  1. INCIVEK [Suspect]
     Indication: HEPATITIS C
     Route: 048
     Dates: start: 20120509
  2. PEGASYS [Concomitant]
     Indication: HEPATITIS C
     Route: 058
     Dates: start: 20120509
  3. RIBAVIRIN [Concomitant]
     Indication: HEPATITIS C
     Route: 048
     Dates: start: 20120509
  4. JANUVIA [Concomitant]
  5. AMLODIPINE [Concomitant]
  6. PRILOSEC [Concomitant]
  7. CLARITIN [Concomitant]
  8. TRAMADOL [Concomitant]
  9. METOPROL [Concomitant]
  10. METFORMIN [Concomitant]
  11. ASA [Concomitant]

REACTIONS (3)
  - Anaemia [Not Recovered/Not Resolved]
  - Influenza like illness [Not Recovered/Not Resolved]
  - Alopecia [Not Recovered/Not Resolved]
